FAERS Safety Report 20069106 (Version 1)
Quarter: 2021Q4

REPORT INFORMATION
  Report Type: Spontaneous
  Country: GB (occurrence: GB)
  Receive Date: 20211115
  Receipt Date: 20211115
  Transmission Date: 20220303
  Serious: Yes (Life-Threatening)
  Sender: FDA-Public Use
  Company Number: None

PATIENT
  Age: 44 Year
  Sex: Female
  Weight: 85 kg

DRUGS (2)
  1. MEROPENEM [Suspect]
     Active Substance: MEROPENEM
     Indication: Surgery
     Dosage: 2 G
     Route: 042
     Dates: start: 20211030, end: 20211030
  2. TEICOPLANIN [Suspect]
     Active Substance: TEICOPLANIN
     Indication: Surgery
     Dosage: 800 MG
     Route: 042
     Dates: start: 20211030, end: 20211030

REACTIONS (2)
  - Anaphylactic reaction [Recovered/Resolved]
  - Off label use [Unknown]

NARRATIVE: CASE EVENT DATE: 20211030
